FAERS Safety Report 25541246 (Version 1)
Quarter: 2025Q3

REPORT INFORMATION
  Report Type: Other
  Country: CA (occurrence: CA)
  Receive Date: 20250711
  Receipt Date: 20250711
  Transmission Date: 20251020
  Serious: Yes (Disabling)
  Sender: APOTEX
  Company Number: CA-PGRTD-001138093

PATIENT
  Age: 31 Year
  Sex: Female
  Weight: 62.13 kg

DRUGS (1)
  1. PAROXETINE [Suspect]
     Active Substance: PAROXETINE
     Indication: Depression
     Dosage: 1 EVERY 1 DAYS
     Route: 048

REACTIONS (4)
  - Feeling abnormal [Recovering/Resolving]
  - Sensory disturbance [Recovering/Resolving]
  - Maternal exposure during pregnancy [Recovering/Resolving]
  - Withdrawal syndrome [Recovering/Resolving]
